FAERS Safety Report 18149100 (Version 1)
Quarter: 2020Q3

REPORT INFORMATION
  Report Type: Spontaneous
  Country: CN (occurrence: CN)
  Receive Date: 20200813
  Receipt Date: 20200813
  Transmission Date: 20201103
  Serious: Yes (Other)
  Sender: FDA-Public Use
  Company Number: CN-BAXTER-2020BAX016334

PATIENT
  Age: 64 Year
  Sex: Female
  Weight: 47 kg

DRUGS (4)
  1. ENDOXAN [Suspect]
     Active Substance: CYCLOPHOSPHAMIDE
     Indication: INVASIVE BREAST CARCINOMA
     Dosage: ENDOXAN 0.6G + 0.9% SODIUM CHLORIDE OF 100ML
     Route: 041
     Dates: start: 20200729, end: 20200729
  2. 0.9% SODIUM CHLORIDE INJECTION [Suspect]
     Active Substance: SODIUM CHLORIDE
     Indication: MEDICATION DILUTION
     Dosage: CYCLOPHOSPHAMIDE 0.6G + 0.9% SODIUM CHLORIDE OF 100ML
     Route: 041
     Dates: start: 20200729, end: 20200729
  3. ENDOXAN [Suspect]
     Active Substance: CYCLOPHOSPHAMIDE
     Dosage: DOSE RE?INTRODUCED; ENDOXAN + 0.9% SODIUM CHLORIDE
     Route: 041
  4. 0.9% SODIUM CHLORIDE INJECTION [Suspect]
     Active Substance: SODIUM CHLORIDE
     Dosage: DOSE RE?INTRODUCTION; CYCLOPHOSPHAMIDE + 0.9% SODIUM CHLORIDE
     Route: 041

REACTIONS (2)
  - Nausea [Recovered/Resolved]
  - Vomiting [Recovered/Resolved]

NARRATIVE: CASE EVENT DATE: 20200729
